FAERS Safety Report 6463565-4 (Version None)
Quarter: 2009Q4

REPORT INFORMATION
  Report Type: 
  Country: None (occurrence: None)
  Receive Date: 20091123
  Receipt Date: 20091118
  Transmission Date: 20100525
  Serious: Yes (Hospitalization)
  Sender: FDA-Public Use
  Company Number: 2009SP034977

PATIENT
  Age: 71 Year
  Sex: Male
  Weight: 70.1 kg

DRUGS (5)
  1. PEG-INTRON [Suspect]
     Indication: HEPATITIS C
     Dosage: 100 MCG;QD;PO
     Route: 048
     Dates: start: 20091026, end: 20091102
  2. REBETOL [Suspect]
     Indication: HEPATITIS C
     Dosage: 800 MG;QD;PO
     Route: 048
     Dates: start: 20091026, end: 20091104
  3. TAKEPRON (CON.) [Concomitant]
  4. ADALAT CR (CON.) [Concomitant]
  5. CONSTAN (CON.) [Concomitant]

REACTIONS (1)
  - HYPERBILIRUBINAEMIA [None]
